FAERS Safety Report 18182838 (Version 13)
Quarter: 2024Q3

REPORT INFORMATION
  Report Type: Report from Study
  Country: US (occurrence: US)
  Receive Date: 20200821
  Receipt Date: 20240815
  Transmission Date: 20241017
  Serious: Yes (Other)
  Sender: TAKEDA
  Company Number: US-SHIRE-US202027181

PATIENT
  Age: 62 Year
  Sex: Female
  Weight: 113 kg

DRUGS (53)
  1. HUMAN IMMUNOGLOBULIN G [Suspect]
     Active Substance: HUMAN IMMUNOGLOBULIN G
     Indication: Immunodeficiency common variable
     Dosage: 24 GRAM, Q2WEEKS
     Route: 058
     Dates: start: 20200529
  2. HUMAN IMMUNOGLOBULIN G [Suspect]
     Active Substance: HUMAN IMMUNOGLOBULIN G
     Indication: B-lymphocyte abnormalities
  3. ACETAMINOPHEN [Concomitant]
     Active Substance: ACETAMINOPHEN
     Dosage: UNK
     Route: 065
  4. DULERA [Concomitant]
     Active Substance: FORMOTEROL FUMARATE DIHYDRATE\MOMETASONE FUROATE
     Route: 065
  5. CANDESARTAN CILEXETIL [Concomitant]
     Active Substance: CANDESARTAN CILEXETIL
     Dosage: UNK
     Route: 065
  6. CARDIZEM CD [Concomitant]
     Active Substance: DILTIAZEM HYDROCHLORIDE
  7. VITAMIN B [Concomitant]
     Active Substance: VITAMIN B
  8. LASIX [Concomitant]
     Active Substance: FUROSEMIDE
     Route: 065
  9. UROCIT-K [Concomitant]
     Active Substance: POTASSIUM CITRATE
     Dosage: UNK
     Route: 065
  10. WELCHOL [Concomitant]
     Active Substance: COLESEVELAM HYDROCHLORIDE
     Dosage: UNK
     Route: 065
  11. MAGNESIUM [Concomitant]
     Active Substance: MAGNESIUM
     Dosage: UNK
     Route: 065
  12. CYTOMEL [Concomitant]
     Active Substance: LIOTHYRONINE SODIUM
     Route: 065
  13. IMMUNE SUPPORT [Concomitant]
     Route: 065
  14. VITAMIN D [Concomitant]
     Active Substance: VITAMIN D NOS
  15. ALLOPURINOL [Concomitant]
     Active Substance: ALLOPURINOL
     Route: 065
  16. OCUVITE [Concomitant]
     Active Substance: VITAMINS
  17. BUPROPION [Concomitant]
     Active Substance: BUPROPION
  18. ELIQUIS [Concomitant]
     Active Substance: APIXABAN
  19. PROAIR RESPICLICK [Concomitant]
     Active Substance: ALBUTEROL SULFATE
     Dosage: UNK
     Route: 065
  20. LEVALBUTEROL [Concomitant]
     Active Substance: LEVALBUTEROL
  21. CLARITIN [Concomitant]
     Active Substance: LORATADINE
     Dosage: UNK
     Route: 065
  22. SPIRONOLACTONE [Concomitant]
     Active Substance: SPIRONOLACTONE
     Route: 065
  23. LEVOTHYROXINE [Concomitant]
     Active Substance: LEVOTHYROXINE\LEVOTHYROXINE SODIUM
     Dosage: UNK
     Route: 065
  24. ARMOUR THYROID [Concomitant]
     Active Substance: THYROID, PORCINE
  25. DIPHENHYDRAMINE HYDROCHLORIDE [Concomitant]
     Active Substance: DIPHENHYDRAMINE HYDROCHLORIDE
  26. Lmx [Concomitant]
     Dosage: UNK
     Route: 065
  27. ZINC [Concomitant]
     Active Substance: ZINC
  28. TRULICITY [Concomitant]
     Active Substance: DULAGLUTIDE
     Dosage: UNK
     Route: 065
  29. MELATONIN [Concomitant]
     Active Substance: MELATONIN
     Route: 065
  30. ZINC GLUCONATE [Concomitant]
     Active Substance: ZINC GLUCONATE
     Dosage: UNK
     Route: 065
  31. TAURIN [Concomitant]
     Dosage: UNK
     Route: 065
  32. VITAMIN D2 [Concomitant]
     Active Substance: ERGOCALCIFEROL
     Dosage: UNK
     Route: 065
  33. DIPHENHYDRAMINE [Concomitant]
     Active Substance: DIPHENHYDRAMINE
     Dosage: UNK
     Route: 065
  34. EPINEPHRINE [Concomitant]
     Active Substance: EPINEPHRINE
     Dosage: UNK
     Route: 065
  35. 5-htp [Concomitant]
     Dosage: UNK
     Route: 065
  36. BILBERRY [Concomitant]
     Active Substance: BILBERRY
     Dosage: UNK
     Route: 065
  37. PRASTERONE [Concomitant]
     Active Substance: PRASTERONE
     Dosage: UNK
     Route: 065
  38. SINGULAIR [Concomitant]
     Active Substance: MONTELUKAST SODIUM
     Route: 065
  39. LOSARTAN [Concomitant]
     Active Substance: LOSARTAN\LOSARTAN POTASSIUM
     Dosage: UNK
     Route: 065
  40. VITAMIN B COMPLEX [Concomitant]
     Active Substance: CYANOCOBALAMIN\DEXPANTHENOL\NIACINAMIDE\PYRIDOXINE HYDROCHLORIDE\RIBOFLAVIN 5^-PHOSPHATE SODIUM\THIA
     Dosage: UNK
     Route: 065
  41. VITAMIN B12 [Concomitant]
     Active Substance: CYANOCOBALAMIN
     Route: 065
  42. BIOFLAVONOIDS [Concomitant]
     Active Substance: BIOFLAVONOIDS
     Route: 065
  43. CITRUS [Concomitant]
     Active Substance: ALCOHOL
     Route: 065
  44. XOPENEX [Concomitant]
     Active Substance: LEVALBUTEROL HYDROCHLORIDE
     Route: 065
  45. FLAGYL [Concomitant]
     Active Substance: METRONIDAZOLE\METRONIDAZOLE HYDROCHLORIDE
     Route: 065
  46. CIPRO [Concomitant]
     Active Substance: CIPROFLOXACIN HYDROCHLORIDE
     Route: 065
  47. TYROSINE [Concomitant]
     Active Substance: TYROSINE
     Route: 065
  48. LOVENOX [Concomitant]
     Active Substance: ENOXAPARIN SODIUM
     Route: 065
  49. CRESTOR [Concomitant]
     Active Substance: ROSUVASTATIN CALCIUM
  50. COQ [Concomitant]
  51. IRBESARTAN [Concomitant]
     Active Substance: IRBESARTAN
  52. LEVOTHYROXINE SODIUM [Concomitant]
     Active Substance: LEVOTHYROXINE SODIUM
  53. LEVALBUTEROL TARTRATE [Concomitant]
     Active Substance: LEVALBUTEROL TARTRATE

REACTIONS (11)
  - Systemic mycosis [Unknown]
  - Basal cell carcinoma [Unknown]
  - Bronchitis [Unknown]
  - Weight decreased [Unknown]
  - COVID-19 [Unknown]
  - Foot deformity [Unknown]
  - Insurance issue [Unknown]
  - Product dose omission issue [Unknown]
  - Sinusitis [Unknown]
  - Product use in unapproved indication [Unknown]
  - Nausea [Unknown]

NARRATIVE: CASE EVENT DATE: 20200529
